FAERS Safety Report 18820132 (Version 1)
Quarter: 2021Q1

REPORT INFORMATION
  Report Type: Spontaneous
  Country: US (occurrence: US)
  Receive Date: 20210202
  Receipt Date: 20210202
  Transmission Date: 20210419
  Serious: No
  Sender: FDA-Public Use
  Company Number: US-ALLERGAN-2030772US

PATIENT
  Sex: Male

DRUGS (9)
  1. HYDROCHLOROTHIAZIDE UNK [Suspect]
     Active Substance: HYDROCHLOROTHIAZIDE
     Indication: PRODUCT USED FOR UNKNOWN INDICATION
     Dosage: UNK
     Dates: end: 20200604
  2. FENOFIBRATE. [Concomitant]
     Active Substance: FENOFIBRATE
  3. TYLENOL [Concomitant]
     Active Substance: ACETAMINOPHEN
  4. DILTIAZEM. [Concomitant]
     Active Substance: DILTIAZEM
  5. LUNESTA [Concomitant]
     Active Substance: ESZOPICLONE
  6. ATORVASTATIN [Concomitant]
     Active Substance: ATORVASTATIN
  7. MULTIVITAMIN [Concomitant]
     Active Substance: VITAMINS
  8. FUROSEMIDE. [Concomitant]
     Active Substance: FUROSEMIDE
  9. IBUPROFEN. [Concomitant]
     Active Substance: IBUPROFEN

REACTIONS (7)
  - Blood creatinine increased [Recovering/Resolving]
  - Oedema peripheral [Recovered/Resolved]
  - Upper respiratory tract infection [Recovered/Resolved]
  - Pain [Not Recovered/Not Resolved]
  - Hypercalcaemia [Recovered/Resolved]
  - Nodal rhythm [Recovered/Resolved]
  - Swelling [Not Recovered/Not Resolved]

NARRATIVE: CASE EVENT DATE: 20191106
